FAERS Safety Report 15930750 (Version 1)
Quarter: 2019Q1

REPORT INFORMATION
  Report Type: Spontaneous
  Country: FR (occurrence: FR)
  Receive Date: 20190207
  Receipt Date: 20190207
  Transmission Date: 20190417
  Serious: Yes (Hospitalization)
  Sender: FDA-Public Use
  Company Number: FR-ACCORD-105942

PATIENT
  Age: 65 Year
  Sex: Male
  Weight: 70 kg

DRUGS (10)
  1. MABTHERA [Suspect]
     Active Substance: RITUXIMAB
     Indication: NON-HODGKIN^S LYMPHOMA
     Route: 041
     Dates: start: 20170816, end: 20170816
  2. CYTARABINE/CYTARABINE HYDROCHLORIDE/CYTARABINE OCFOSFATE [Suspect]
     Active Substance: CYTARABINE
     Indication: NON-HODGKIN^S LYMPHOMA
     Route: 041
     Dates: start: 20170816, end: 20170817
  3. ZOPHREN [Concomitant]
     Active Substance: ONDANSETRON
     Indication: VOMITING
     Route: 041
     Dates: start: 20170816, end: 20170818
  4. POLARAMINE [Concomitant]
     Active Substance: DEXCHLORPHENIRAMINE MALEATE
     Indication: NON-HODGKIN^S LYMPHOMA
     Route: 040
     Dates: start: 20170816, end: 20170816
  5. DIAMICRON [Concomitant]
     Active Substance: GLICLAZIDE
     Indication: DIABETES MELLITUS
     Route: 048
  6. AIGMENTIN [Concomitant]
     Indication: HYPERTHERMIA
     Route: 065
  7. OXALIPLATIN. [Suspect]
     Active Substance: OXALIPLATIN
     Indication: NON-HODGKIN^S LYMPHOMA
     Route: 041
     Dates: start: 20170816, end: 20170816
  8. DEXAMETHASONE. [Suspect]
     Active Substance: DEXAMETHASONE
     Indication: NON-HODGKIN^S LYMPHOMA
     Dosage: ALSO RECEIVED 40 MG FROM 17-AUG-2017 TO 20-AUG-2017
     Route: 041
     Dates: start: 20170816, end: 20170816
  9. LANTUS [Concomitant]
     Active Substance: INSULIN GLARGINE
     Indication: DIABETES MELLITUS
     Route: 058
  10. PERFALGAN [Concomitant]
     Active Substance: ACETAMINOPHEN
     Indication: NON-HODGKIN^S LYMPHOMA
     Route: 041
     Dates: start: 20170816, end: 20170816

REACTIONS (4)
  - Cardiac ventricular disorder [Recovered/Resolved]
  - Atrial fibrillation [Recovered/Resolved]
  - Off label use [Unknown]
  - Acute pulmonary oedema [Recovered/Resolved]

NARRATIVE: CASE EVENT DATE: 20170819
